FAERS Safety Report 13719120 (Version 1)
Quarter: 2017Q3

REPORT INFORMATION
  Report Type: Spontaneous
  Country: US (occurrence: US)
  Receive Date: 20170705
  Receipt Date: 20170705
  Transmission Date: 20171127
  Serious: Yes (Other)
  Sender: FDA-Public Use
  Company Number: US-TEVA-783097USA

PATIENT
  Sex: Male

DRUGS (6)
  1. METHOTREXATE. [Suspect]
     Active Substance: METHOTREXATE
     Indication: IMMUNE TOLERANCE INDUCTION
     Dosage: INITIATED PRIOR TO INTENSIFICATION REGIMEN; LATER GIVEN AS A PART OF MAINTENANCE REGIMEN
     Route: 065
  2. OFATUMUMAB [Suspect]
     Active Substance: OFATUMUMAB
     Indication: IMMUNE TOLERANCE INDUCTION
     Dosage: INITIATED PRIOR TO INTENSIFICATION REGIMEN; LATER GIVEN AS A PART OF MAINTENANCE REGIMEN
     Route: 065
  3. BORTEZOMIB [Concomitant]
     Active Substance: BORTEZOMIB
     Indication: IMMUNE TOLERANCE INDUCTION
     Dosage: PART OF INTENSIFICATION REGIMEN
     Route: 065
  4. ELAPRASE [Suspect]
     Active Substance: IDURSULFASE
     Indication: MUCOPOLYSACCHARIDOSIS II
     Route: 050
  5. IMMUNOGLOBULINS NOS [Suspect]
     Active Substance: IMMUNE GLOBULIN NOS
     Indication: IMMUNE TOLERANCE INDUCTION
     Dosage: GIVEN AS A PART OF MAINTENANCE REGIMEN
     Route: 065
  6. DEXAMETHASONE. [Concomitant]
     Active Substance: DEXAMETHASONE
     Indication: IMMUNE TOLERANCE INDUCTION
     Dosage: PART OF INTENSIFICATION REGIMEN
     Route: 065

REACTIONS (7)
  - Oedema [Recovering/Resolving]
  - Irritability [Recovering/Resolving]
  - Anaphylactic reaction [Recovering/Resolving]
  - Rash [Recovering/Resolving]
  - Infusion related reaction [None]
  - Hypokalaemia [Recovering/Resolving]
  - Urticaria [Recovering/Resolving]
